FAERS Safety Report 18054495 (Version 1)
Quarter: 2020Q3

REPORT INFORMATION
  Report Type: Spontaneous
  Country: US (occurrence: US)
  Receive Date: 20200721
  Receipt Date: 20200721
  Transmission Date: 20201103
  Serious: Yes (Other)
  Sender: FDA-Public Use
  Company Number: None

PATIENT
  Age: 73 Year
  Sex: Male
  Weight: 111.58 kg

DRUGS (1)
  1. DOCETAXEL (DOCETAXEL 10MG/ML INJ, CONC) [Suspect]
     Active Substance: DOCETAXEL ANHYDROUS
     Indication: PROSTATE CANCER
     Route: 042
     Dates: start: 20200227, end: 20200520

REACTIONS (2)
  - Therapy cessation [None]
  - Interstitial lung disease [None]

NARRATIVE: CASE EVENT DATE: 20200520
